FAERS Safety Report 8917485 (Version 6)
Quarter: 2014Q2

REPORT INFORMATION
  Report Type: Spontaneous
  Country: US (occurrence: US)
  Receive Date: 20121119
  Receipt Date: 20140618
  Transmission Date: 20141212
  Serious: Yes (Hospitalization)
  Sender: FDA-Public Use
  Company Number: US-009507513-1211USA006388

PATIENT
  Sex: Female
  Weight: 54.42 kg

DRUGS (2)
  1. NUVARING [Suspect]
     Indication: MIGRAINE
     Dosage: UNK
     Route: 067
     Dates: start: 20071106, end: 20081124
  2. NUVARING [Suspect]
     Indication: CONTRACEPTION

REACTIONS (10)
  - Deep vein thrombosis [Recovering/Resolving]
  - Maternal exposure before pregnancy [Recovered/Resolved]
  - Off label use [Unknown]
  - Inappropriate schedule of drug administration [Unknown]
  - Metrorrhagia [Unknown]
  - Back pain [Unknown]
  - Depression [Unknown]
  - Sinusitis [Unknown]
  - Stress [Unknown]
  - Nausea [Unknown]
